FAERS Safety Report 6152294-2 (Version None)
Quarter: 2009Q2

REPORT INFORMATION
  Report Type: 
  Country: None (occurrence: None)
  Receive Date: 20090410
  Receipt Date: 20090409
  Transmission Date: 20091009
  Serious: Yes (Hospitalization)
  Sender: FDA-Public Use
  Company Number: FR-MERCK-0904FRA00034

PATIENT
  Age: 79 Year
  Sex: Male

DRUGS (3)
  1. PRIMAXIN [Suspect]
     Indication: MEDIASTINITIS
     Route: 041
     Dates: start: 20080926, end: 20081013
  2. VANCOMYCIN HCL [Suspect]
     Indication: MEDIASTINITIS
     Route: 042
     Dates: start: 20080926, end: 20081009
  3. CIPROFLOXACIN HYDROCHLORIDE [Suspect]
     Indication: MEDIASTINITIS
     Route: 042
     Dates: start: 20080926, end: 20081013

REACTIONS (3)
  - DERMATITIS EXFOLIATIVE [None]
  - EOSINOPHILIA [None]
  - SKIN EXFOLIATION [None]
